FAERS Safety Report 5747094-9 (Version None)
Quarter: 2008Q2

REPORT INFORMATION
  Report Type: 
  Country: None (occurrence: None)
  Receive Date: 20080522
  Receipt Date: 20080516
  Transmission Date: 20081010
  Serious: Yes (Hospitalization)
  Sender: FDA-Public Use
  Company Number: ES-BOEHRINGER INGELHEIM GMBH, GERMANY-2008-DE-02869GD

PATIENT

DRUGS (1)
  1. RANITIDINE [Suspect]

REACTIONS (1)
  - NEPHRITIS INTERSTITIAL [None]
